FAERS Safety Report 9423573 (Version 1)
Quarter: 2013Q3

REPORT INFORMATION
  Report Type: Spontaneous
  Country: IL (occurrence: IL)
  Receive Date: 20130726
  Receipt Date: 20130726
  Transmission Date: 20140515
  Serious: Yes (Hospitalization)
  Sender: FDA-Public Use
  Company Number: IL-009507513-0610USA03240

PATIENT
  Age: 42 Year
  Sex: Female

DRUGS (2)
  1. DEXAMETHASONE SODIUM PHOSPHATE [Suspect]
     Indication: ANTIEMETIC SUPPORTIVE CARE
     Dosage: 20 MG, ONCE
     Route: 042
  2. DEXAMETHASONE SODIUM PHOSPHATE [Suspect]
     Dosage: LOW DOSE
     Route: 042

REACTIONS (1)
  - Tumour lysis syndrome [Unknown]
